FAERS Safety Report 6238024-4 (Version None)
Quarter: 2009Q2

REPORT INFORMATION
  Report Type: 
  Country: None (occurrence: None)
  Receive Date: 20090617
  Receipt Date: 20090617
  Transmission Date: 20091009
  Serious: No
  Sender: FDA-Public Use
  Company Number: None

PATIENT
  Age: 70 Year
  Sex: Male

DRUGS (1)
  1. COSOPT [Suspect]
     Indication: OPEN ANGLE GLAUCOMA
     Dosage: ONE DROP IN THE RIGHT EYE BID OPHTHALMIC
     Route: 047

REACTIONS (3)
  - CONJUNCTIVAL HYPERAEMIA [None]
  - HEADACHE [None]
  - PRODUCT SUBSTITUTION ISSUE [None]
